FAERS Safety Report 8797743 (Version 2)
Quarter: 2012Q4

REPORT INFORMATION
  Report Type: 
  Country: US (occurrence: US)
  Receive Date: 20120919
  Receipt Date: 20120928
  Transmission Date: 20130627
  Serious: Yes (Death)
  Sender: FDA-Public Use
  Company Number: US-ROCHE-1127603

PATIENT
  Sex: Female

DRUGS (1)
  1. AVASTIN [Suspect]
     Indication: COLON CANCER
     Route: 065
     Dates: start: 20100114, end: 20111110

REACTIONS (4)
  - Disease progression [Fatal]
  - Fatigue [Unknown]
  - Anaemia [Unknown]
  - Depression [Unknown]
